FAERS Safety Report 8128061-7 (Version None)
Quarter: 2011Q4

REPORT INFORMATION
  Report Type: 
  Country: None (occurrence: None)
  Receive Date: 20111230
  Receipt Date: 20111109
  Transmission Date: 20120403
  Serious: Yes (Other)
  Sender: FDA-Public Use
  Company Number: 308705USA

PATIENT
  Sex: Female

DRUGS (1)
  1. VENLAFAXINE [Suspect]
     Indication: GENERALISED ANXIETY DISORDER
     Dosage: (150 MG)
     Dates: start: 20100101

REACTIONS (3)
  - SUICIDAL IDEATION [None]
  - ABNORMAL DREAMS [None]
  - HALLUCINATION [None]
